FAERS Safety Report 4818331-X (Version None)
Quarter: 2005Q4

REPORT INFORMATION
  Report Type: 
  Country: None (occurrence: None)
  Receive Date: 20051102
  Receipt Date: 20051028
  Transmission Date: 20060501
  Serious: Yes (Death, Hospitalization)
  Sender: FDA-Public Use
  Company Number: PHHO2005TH17009

PATIENT
  Age: 67 Year
  Sex: Male
  Weight: 54 kg

DRUGS (3)
  1. GLEEVEC [Suspect]
     Indication: CHRONIC MYELOID LEUKAEMIA
     Dosage: 300 MG, QD
     Route: 048
     Dates: start: 20050628
  2. GLEEVEC [Suspect]
     Dosage: UNKNOWN
     Dates: end: 20050905
  3. GLEEVEC [Suspect]
     Dosage: 300 MG, QD
     Route: 048
     Dates: start: 20050906, end: 20051024

REACTIONS (2)
  - PANCYTOPENIA [None]
  - PLEURAL EFFUSION [None]
